FAERS Safety Report 7324388-7 (Version None)
Quarter: 2011Q1

REPORT INFORMATION
  Report Type: 
  Country: None (occurrence: None)
  Receive Date: 20110301
  Receipt Date: 20110226
  Transmission Date: 20110831
  Serious: No
  Sender: FDA-Public Use
  Company Number: US-PFIZER INC-2011042061

PATIENT
  Age: 9 Month
  Sex: Female

DRUGS (1)
  1. ADVIL LIQUI-GELS [Suspect]
     Indication: ACCIDENTAL EXPOSURE
     Dosage: 200 MG, 1 TIME
     Route: 048
     Dates: start: 20110226, end: 20110226

REACTIONS (2)
  - ACCIDENTAL OVERDOSE [None]
  - ACCIDENTAL DRUG INTAKE BY CHILD [None]
